FAERS Safety Report 8040543-5 (Version None)
Quarter: 2012Q1

REPORT INFORMATION
  Report Type: 
  Country: None (occurrence: None)
  Receive Date: 20120111
  Receipt Date: 20111230
  Transmission Date: 20120608
  Serious: No
  Sender: FDA-Public Use
  Company Number: US-AMGEN-USASP2011069780

PATIENT
  Age: 38 Year
  Sex: Female

DRUGS (1)
  1. ENBREL [Suspect]
     Indication: RHEUMATOID ARTHRITIS
     Dosage: 50 MG, QWK
     Dates: start: 20060315

REACTIONS (9)
  - VISUAL IMPAIRMENT [None]
  - VITREOUS FLOATERS [None]
  - PAIN [None]
  - ERYTHEMA [None]
  - RHEUMATOID ARTHRITIS [None]
  - PHOTOPHOBIA [None]
  - MIGRAINE [None]
  - INFLAMMATION [None]
  - THERAPEUTIC RESPONSE DECREASED [None]
